FAERS Safety Report 20955059 (Version 1)
Quarter: 2022Q2

REPORT INFORMATION
  Report Type: Spontaneous
  Country: US (occurrence: US)
  Receive Date: 20220614
  Receipt Date: 20220614
  Transmission Date: 20220721
  Serious: No
  Sender: FDA-Public Use
  Company Number: US-UNITED THERAPEUTICS-UNT-2022-012660

PATIENT
  Sex: Male

DRUGS (3)
  1. REMODULIN [Suspect]
     Active Substance: TREPROSTINIL
     Indication: Pulmonary arterial hypertension
     Dosage: UNK, CONTINUING
     Route: 058
     Dates: start: 20210608
  2. REMODULIN [Suspect]
     Active Substance: TREPROSTINIL
     Dosage: 0.0103 ?G/KG, CONTINUING
     Route: 058
  3. IMODIUM [Suspect]
     Active Substance: LOPERAMIDE HYDROCHLORIDE
     Indication: Diarrhoea
     Dosage: UNK
     Route: 065

REACTIONS (4)
  - Infusion site pruritus [Unknown]
  - Diarrhoea [Unknown]
  - Constipation [Unknown]
  - Dyspnoea [Unknown]
